FAERS Safety Report 4642211-6 (Version None)
Quarter: 2005Q2

REPORT INFORMATION
  Report Type: 
  Country: None (occurrence: None)
  Receive Date: 20050420
  Receipt Date: 20050405
  Transmission Date: 20051028
  Serious: Yes (Death, Life-Threatening, Hospitalization, Disabling)
  Sender: FDA-Public Use
  Company Number: 2005GB00225

PATIENT
  Age: 70 Year
  Sex: Male
  Weight: 70 kg

DRUGS (21)
  1. CRESTOR [Suspect]
     Indication: BLOOD CHOLESTEROL INCREASED
     Dosage: 10 MG PO
     Route: 048
     Dates: start: 20031101, end: 20040301
  2. CRESTOR [Suspect]
     Indication: MYOCARDIAL ISCHAEMIA
     Dosage: 10 MG PO
     Route: 048
     Dates: start: 20031101, end: 20040301
  3. CRESTOR [Suspect]
     Indication: BLOOD CHOLESTEROL INCREASED
     Dosage: 20 MG PO
     Route: 048
     Dates: start: 20040401, end: 20050107
  4. CRESTOR [Suspect]
     Indication: MYOCARDIAL ISCHAEMIA
     Dosage: 20 MG PO
     Route: 048
     Dates: start: 20040401, end: 20050107
  5. AUGMENTIN '125' [Suspect]
     Indication: LOWER RESPIRATORY TRACT INFECTION
  6. GLICLAZIDE [Concomitant]
  7. VERAPAMIL [Concomitant]
  8. WARFARIN SODIUM [Concomitant]
  9. AMIODARONE [Concomitant]
  10. TEGRETOL [Concomitant]
  11. PERINDOPRIL [Concomitant]
  12. SPIRONOLACTONE [Concomitant]
  13. FRUSEMIDE [Concomitant]
  14. LEVOTHYROXINE SODIUM [Concomitant]
  15. INSULTARD [Concomitant]
  16. SALBUTAMOL [Concomitant]
  17. SERETIDE ^ALLEN + HANBURYS LTD^ [Concomitant]
  18. GTN [Concomitant]
  19. ISMN ^GENERICON^ [Concomitant]
  20. SENNA [Concomitant]
  21. LODINE [Concomitant]

REACTIONS (17)
  - ALANINE AMINOTRANSFERASE INCREASED [None]
  - ARRHYTHMIA [None]
  - BUNDLE BRANCH BLOCK LEFT [None]
  - CARDIAC ARREST [None]
  - CARDIOMYOPATHY [None]
  - CLOSTRIDIAL INFECTION [None]
  - CONFUSIONAL STATE [None]
  - DIARRHOEA [None]
  - ELECTROMECHANICAL DISSOCIATION [None]
  - HAEMATURIA [None]
  - HALLUCINATION [None]
  - LOWER RESPIRATORY TRACT INFECTION [None]
  - METABOLIC DISORDER [None]
  - MUSCULOSKELETAL STIFFNESS [None]
  - MYOPATHY [None]
  - POLYMYALGIA RHEUMATICA [None]
  - POLYMYOSITIS [None]
